FAERS Safety Report 10203693 (Version 4)
Quarter: 2017Q1

REPORT INFORMATION
  Report Type: Spontaneous
  Country: US (occurrence: US)
  Receive Date: 20140529
  Receipt Date: 20170323
  Transmission Date: 20170428
  Serious: Yes (Other)
  Sender: FDA-Public Use
  Company Number: US-ROCHE-1408972

PATIENT
  Age: 68 Year
  Sex: Female
  Weight: 81.72 kg

DRUGS (21)
  1. EPIPEN [Concomitant]
     Active Substance: EPINEPHRINE
     Dosage: 0.3 MG/03. ML
     Route: 030
  2. BROVANA [Concomitant]
     Active Substance: ARFORMOTEROL TARTRATE
     Dosage: 15 MCG/2 ML NEBULIZER SOLUTION
     Route: 065
  3. BACTROBAN [Concomitant]
     Active Substance: MUPIROCIN\MUPIROCIN CALCIUM
     Route: 065
     Dates: start: 20140401
  4. XOLAIR [Suspect]
     Active Substance: OMALIZUMAB
     Route: 058
     Dates: start: 20140410, end: 20140514
  5. ASPIRIN. [Concomitant]
     Active Substance: ASPIRIN
     Route: 048
  6. XOLAIR [Suspect]
     Active Substance: OMALIZUMAB
     Route: 058
     Dates: start: 20140310
  7. LASIX [Concomitant]
     Active Substance: FUROSEMIDE
     Route: 065
  8. CALCIUM CARBONATE. [Concomitant]
     Active Substance: CALCIUM CARBONATE
     Route: 065
  9. BENICAR [Concomitant]
     Active Substance: OLMESARTAN MEDOXOMIL
     Route: 065
  10. ALTACE [Concomitant]
     Active Substance: RAMIPRIL
     Route: 065
  11. PROAIR HFA [Concomitant]
     Active Substance: ALBUTEROL SULFATE
     Dosage: 2 PUFF EVERY 6 HOURS AS NEEDED.
     Route: 065
  12. PULMICORT TURBUHALER [Concomitant]
     Active Substance: BUDESONIDE
     Dosage: 1 MG/ 2 ML NEBULIZER SOLUTION
     Route: 065
  13. XOLAIR [Suspect]
     Active Substance: OMALIZUMAB
     Indication: ASTHMA
     Route: 058
     Dates: start: 20110718
  14. XOLAIR [Suspect]
     Active Substance: OMALIZUMAB
     Route: 058
     Dates: start: 20140410, end: 20140514
  15. NEXIUM [Concomitant]
     Active Substance: ESOMEPRAZOLE MAGNESIUM
     Route: 065
  16. SINGULAIR [Concomitant]
     Active Substance: MONTELUKAST SODIUM
     Route: 065
  17. SPIRIVA [Concomitant]
     Active Substance: TIOTROPIUM BROMIDE MONOHYDRATE
     Route: 065
  18. LIPITOR [Concomitant]
     Active Substance: ATORVASTATIN CALCIUM
     Route: 048
  19. XOPENEX [Concomitant]
     Active Substance: LEVALBUTEROL HYDROCHLORIDE
     Dosage: 0.63 MG/3 ML NEBULIZER SOLUTION
     Route: 065
  20. REQUIP [Concomitant]
     Active Substance: ROPINIROLE HYDROCHLORIDE
     Dosage: AT BED TIME.
     Route: 048
     Dates: start: 20140310
  21. DIOVAN [Concomitant]
     Active Substance: VALSARTAN
     Route: 065

REACTIONS (8)
  - Hypersensitivity [Unknown]
  - Restless legs syndrome [Unknown]
  - Wheezing [Unknown]
  - Blood immunoglobulin E increased [Unknown]
  - Acute sinusitis [Unknown]
  - Rash macular [Not Recovered/Not Resolved]
  - Cough [Unknown]
  - Bronchial hyperreactivity [Unknown]

NARRATIVE: CASE EVENT DATE: 20120514
